FAERS Safety Report 23376364 (Version 1)
Quarter: 2024Q1

REPORT INFORMATION
  Report Type: Spontaneous
  Country: US (occurrence: US)
  Receive Date: 20240108
  Receipt Date: 20240108
  Transmission Date: 20240410
  Serious: No
  Sender: FDA-Public Use
  Company Number: US-GSKCCFUS-Case-01895494_AE-105728

PATIENT
  Sex: Female

DRUGS (1)
  1. TRELEGY ELLIPTA [Suspect]
     Active Substance: FLUTICASONE FUROATE\UMECLIDINIUM BROMIDE\VILANTEROL TRIFENATATE
     Indication: Asthma
     Dosage: 2 PUFF(S) DAILY, 100/62.5/25 MCG
     Dates: start: 20231213

REACTIONS (4)
  - Wrong technique in device usage process [Unknown]
  - Overdose [Unknown]
  - Product dispensing error [Unknown]
  - Drug ineffective [Unknown]
